FAERS Safety Report 9705257 (Version 2)
Quarter: 2014Q2

REPORT INFORMATION
  Report Type: Spontaneous
  Country: US (occurrence: US)
  Receive Date: 20131122
  Receipt Date: 20140630
  Transmission Date: 20141212
  Serious: Yes (Other)
  Sender: FDA-Public Use
  Company Number: US-SA-2013SA119348

PATIENT
  Age: 20 Month
  Sex: Female

DRUGS (1)
  1. CEREZYME [Suspect]
     Indication: GAUCHER^S DISEASE
     Dosage: DOSE:1200 UNIT(S)
     Route: 042
     Dates: start: 201306, end: 201405

REACTIONS (3)
  - Convulsion [Not Recovered/Not Resolved]
  - Tracheitis [Not Recovered/Not Resolved]
  - Stem cell transplant [Unknown]
